FAERS Safety Report 23057197 (Version 2)
Quarter: 2023Q4

REPORT INFORMATION
  Report Type: Report from Study
  Country: FR (occurrence: FR)
  Receive Date: 20231012
  Receipt Date: 20231017
  Transmission Date: 20240110
  Serious: Yes (Other)
  Sender: FDA-Public Use
  Company Number: FR-002147023-NVSC2023FR136392

PATIENT
  Sex: Male

DRUGS (1)
  1. LUTATHERA [Suspect]
     Active Substance: LUTETIUM OXODOTREOTIDE LU-177
     Indication: Neuroendocrine tumour
     Dosage: 3726 MBQ (FIRST CYCLE)
     Route: 065
     Dates: start: 20230502, end: 20230502

REACTIONS (4)
  - Renal tubular necrosis [Unknown]
  - Renal failure [Unknown]
  - Glomerular filtration rate decreased [Unknown]
  - Underdose [Unknown]
